FAERS Safety Report 4623297-1 (Version None)
Quarter: 2005Q1

REPORT INFORMATION
  Report Type: 
  Country: None (occurrence: None)
  Receive Date: 20050329
  Receipt Date: 20050314
  Transmission Date: 20050727
  Serious: Yes (Hospitalization, Other)
  Sender: FDA-Public Use
  Company Number: 2005BI000789

PATIENT
  Age: 24 Year
  Sex: Male
  Weight: 170.0989 kg

DRUGS (3)
  1. AVONEX [Suspect]
     Indication: MULTIPLE SCLEROSIS
     Dosage: 30 UG; QW; IM
     Route: 030
     Dates: start: 20040201, end: 20050105
  2. MULTI-VITAMIN [Concomitant]
  3. CALCIUM SUPPLEMENT [Concomitant]

REACTIONS (14)
  - ACCIDENT AT WORK [None]
  - ANKLE FRACTURE [None]
  - BLOOD PHOSPHORUS DECREASED [None]
  - BLOOD URINE PRESENT [None]
  - CARDIAC VENTRICULAR DISORDER [None]
  - CONDITION AGGRAVATED [None]
  - CONVULSION [None]
  - DISEASE RECURRENCE [None]
  - FALL [None]
  - INFLUENZA LIKE ILLNESS [None]
  - JOINT SWELLING [None]
  - MULTIPLE SCLEROSIS [None]
  - MUSCLE SPASMS [None]
  - PULMONARY EMBOLISM [None]
